FAERS Safety Report 20403595 (Version 4)
Quarter: 2024Q2

REPORT INFORMATION
  Report Type: Spontaneous
  Country: CA (occurrence: CA)
  Receive Date: 20220131
  Receipt Date: 20240520
  Transmission Date: 20240716
  Serious: Yes (Other)
  Sender: FDA-Public Use
  Company Number: CA-MLMSERVICE-20220111-3310853-1

PATIENT
  Age: 39 Year
  Sex: Female

DRUGS (15)
  1. DULOXETINE [Interacting]
     Active Substance: DULOXETINE
     Indication: Migraine prophylaxis
     Dosage: 30 MILLIGRAM, QD
     Route: 065
     Dates: start: 201708, end: 201711
  2. DULOXETINE [Interacting]
     Active Substance: DULOXETINE
     Indication: Depression
  3. DULOXETINE [Interacting]
     Active Substance: DULOXETINE
     Indication: Anxiety
  4. PAROXETINE HYDROCHLORIDE [Suspect]
     Active Substance: PAROXETINE HYDROCHLORIDE\PAROXETINE HYDROCHLORIDE ANHYDROUS
     Indication: Mood swings
     Dosage: 10 MG, QD
     Route: 065
     Dates: start: 201802, end: 2018
  5. ESCITALOPRAM [Suspect]
     Active Substance: ESCITALOPRAM OXALATE
     Indication: Anxiety
     Dosage: 7.5 MG, QD
     Route: 048
  6. ESCITALOPRAM [Suspect]
     Active Substance: ESCITALOPRAM OXALATE
     Indication: Depression
     Dosage: 5 MG, QD
     Route: 048
     Dates: start: 201810
  7. SUMATRIPTAN [Interacting]
     Active Substance: SUMATRIPTAN
     Indication: Migraine
     Dosage: 100 MILLIGRAM, DAILY (AS NEEDED)
     Route: 048
     Dates: start: 201701
  8. SUMATRIPTAN [Interacting]
     Active Substance: SUMATRIPTAN
     Indication: Migraine prophylaxis
  9. PROMETHAZINE HYDROCHLORIDE [Concomitant]
     Active Substance: PROMETHAZINE HYDROCHLORIDE
     Indication: Migraine
     Dosage: 25 MG, QD (AS NEEDED)
     Route: 048
  10. ZOLPIDEM [Concomitant]
     Active Substance: ZOLPIDEM TARTRATE
     Indication: Insomnia
     Dosage: 5 MG, AS NEEDED, AT BEDTIME
     Route: 048
  11. VITAMIN C [Concomitant]
     Active Substance: ASCORBIC ACID
     Indication: Nutritional supplementation
     Dosage: 125 MG, BID
     Route: 048
  12. ETHINYL ESTRADIOL\LEVONORGESTREL [Concomitant]
     Active Substance: ETHINYL ESTRADIOL\LEVONORGESTREL
     Indication: Hormonal contraception
     Dosage: UNK, QD
     Route: 048
  13. LORATADINE\PSEUDOEPHEDRINE SULFATE [Concomitant]
     Active Substance: LORATADINE\PSEUDOEPHEDRINE SULFATE
     Indication: Rhinitis allergic
     Dosage: UNKNOWN, DAILY AS NEEDED, USED ONCE OR TWICE A WEEK
     Route: 048
  14. KETOROLAC [Concomitant]
     Active Substance: KETOROLAC TROMETHAMINE
     Indication: Migraine
     Dosage: 10 MG, QD, AS NEEDED
     Route: 048
  15. VITAMIN D [Concomitant]
     Active Substance: VITAMIN D NOS
     Indication: Nutritional supplementation
     Dosage: 2000 INTERNATIONAL UNIT, QD, DROPS
     Route: 048

REACTIONS (16)
  - Depressive symptom [Unknown]
  - Agitation [Unknown]
  - Depressed mood [Recovered/Resolved]
  - Drug-disease interaction [Unknown]
  - Anxiety [Not Recovered/Not Resolved]
  - Condition aggravated [Unknown]
  - Drug interaction [Unknown]
  - Body temperature increased [Recovered/Resolved]
  - Hyperhidrosis [Unknown]
  - Hot flush [Unknown]
  - Insomnia [Unknown]
  - Headache [Unknown]
  - Middle insomnia [Unknown]
  - Dyspepsia [Unknown]
  - Drug ineffective [Unknown]
  - Drug intolerance [Unknown]

NARRATIVE: CASE EVENT DATE: 20170101
